FAERS Safety Report 23266445 (Version 1)
Quarter: 2023Q4

REPORT INFORMATION
  Report Type: Spontaneous
  Country: US (occurrence: US)
  Receive Date: 20231206
  Receipt Date: 20231206
  Transmission Date: 20240109
  Serious: Yes (Disabling, Other)
  Sender: FDA-Public Use
  Company Number: US-REGENERON PHARMACEUTICALS, INC.-2023-147034

PATIENT
  Sex: Male

DRUGS (1)
  1. EYLEA [Suspect]
     Active Substance: AFLIBERCEPT
     Indication: Diabetic retinopathy
     Dosage: UNK, Q6W (FORMULATION: UNKNOWN
     Dates: start: 2023

REACTIONS (5)
  - Blindness unilateral [Not Recovered/Not Resolved]
  - Eye infection [Recovering/Resolving]
  - Eye haemorrhage [Recovered/Resolved]
  - Road traffic accident [Unknown]
  - Ocular hyperaemia [Recovered/Resolved]

NARRATIVE: CASE EVENT DATE: 20230101
